FAERS Safety Report 5033058-X (Version None)
Quarter: 2006Q2

REPORT INFORMATION
  Report Type: 
  Country: None (occurrence: None)
  Receive Date: 20060622
  Receipt Date: 20060612
  Transmission Date: 20061013
  Serious: Yes (Hospitalization)
  Sender: FDA-Public Use
  Company Number: US-ROCHE-451754

PATIENT
  Sex: Female

DRUGS (1)
  1. BONIVA [Suspect]
     Indication: DRUG USE FOR UNKNOWN INDICATION
     Dosage: PATIENT HAD BEEN TAKING IBANDRONIC ACID ^ON AND OFF^
     Route: 065
     Dates: start: 20050615

REACTIONS (7)
  - ARTHRALGIA [None]
  - BLOOD CHOLESTEROL INCREASED [None]
  - COLITIS [None]
  - HAEMORRHAGE [None]
  - MYALGIA [None]
  - ULCER [None]
  - WEIGHT INCREASED [None]
